FAERS Safety Report 14839108 (Version 2)
Quarter: 2022Q3

REPORT INFORMATION
  Report Type: Spontaneous
  Country: GB (occurrence: GB)
  Receive Date: 20180502
  Receipt Date: 20220926
  Transmission Date: 20221027
  Serious: Yes (Life-Threatening, Hospitalization, Disabling, Other)
  Sender: FDA-Public Use
  Company Number: GB-SA-2016SA130368

PATIENT
  Age: 42 Year
  Sex: Female

DRUGS (10)
  1. EPINEPHRINE [Suspect]
     Active Substance: EPINEPHRINE
     Indication: Bradycardia
     Dosage: 1 MG,1X , TOTAL
     Route: 042
  2. EPINEPHRINE [Suspect]
     Active Substance: EPINEPHRINE
     Dosage: UNK
     Route: 065
  3. EPINEPHRINE [Suspect]
     Active Substance: EPINEPHRINE
     Dosage: 0.1 MILLIGRAM, TOTAL
     Route: 042
  4. PIPERACILLIN SODIUM\TAZOBACTAM SODIUM [Interacting]
     Active Substance: PIPERACILLIN SODIUM\TAZOBACTAM SODIUM
     Indication: Otitis media
     Route: 042
  5. AMOXICILLIN\CLAVULANIC ACID [Suspect]
     Active Substance: AMOXICILLIN\CLAVULANIC ACID
     Indication: Otitis media
     Dosage: UNK
     Route: 048
  6. LABETALOL [Interacting]
     Active Substance: LABETALOL\LABETALOL HYDROCHLORIDE
     Indication: Hypertension
     Dosage: UNK
     Route: 065
  7. NOREPINEPHRINE [Suspect]
     Active Substance: NOREPINEPHRINE
     Indication: Bradycardia
     Dosage: INFUSION
     Route: 065
  8. AMLODIPINE [Concomitant]
     Active Substance: AMLODIPINE BESYLATE
     Indication: Hypertension
     Route: 065
  9. DOXAZOSIN [Concomitant]
     Active Substance: DOXAZOSIN MESYLATE
     Indication: Hypertension
     Route: 065
  10. CANDESARTAN [Concomitant]
     Active Substance: CANDESARTAN
     Indication: Hypertension
     Route: 065

REACTIONS (17)
  - Anaphylactic reaction [Recovered/Resolved]
  - Pulseless electrical activity [Recovered/Resolved]
  - Cardiac arrest [Recovered/Resolved with Sequelae]
  - Blood pH decreased [Recovered/Resolved]
  - Drug ineffective [Unknown]
  - Respiratory failure [Recovered/Resolved]
  - Blood lactic acid increased [Recovered/Resolved]
  - Tryptase increased [Recovered/Resolved]
  - Base excess decreased [Recovered/Resolved]
  - Lactic acidosis [Recovered/Resolved]
  - Cardiac output decreased [Recovered/Resolved]
  - Cardiac contractility decreased [Recovered/Resolved]
  - Bradycardia [Recovered/Resolved]
  - Decreased ventricular preload [Recovered/Resolved]
  - Nervous system disorder [Not Recovered/Not Resolved]
  - Hypotension [Recovered/Resolved]
  - Drug interaction [Unknown]
